FAERS Safety Report 21921689 (Version 1)
Quarter: 2023Q1

REPORT INFORMATION
  Report Type: Spontaneous
  Country: PT (occurrence: PT)
  Receive Date: 20230127
  Receipt Date: 20230127
  Transmission Date: 20230417
  Serious: Yes (Hospitalization)
  Sender: FDA-Public Use
  Company Number: PT-BAUSCHBL-2023BNL000534

PATIENT
  Age: 52 Year
  Sex: Male

DRUGS (1)
  1. GENTAMICIN [Suspect]
     Active Substance: GENTAMICIN
     Indication: Antibiotic prophylaxis
     Route: 061
     Dates: start: 202203, end: 202206

REACTIONS (3)
  - Mycobacterium chelonae infection [Recovering/Resolving]
  - Catheter site infection [Recovering/Resolving]
  - Application site eczema [Unknown]

NARRATIVE: CASE EVENT DATE: 20220101
